FAERS Safety Report 4533632-0 (Version None)
Quarter: 2004Q4

REPORT INFORMATION
  Report Type: 
  Country: None (occurrence: None)
  Receive Date: 20041221
  Receipt Date: 20041207
  Transmission Date: 20050328
  Serious: Yes (Hospitalization, Other)
  Sender: FDA-Public Use
  Company Number: US-GLAXOSMITHKLINE-A0536318A

PATIENT
  Age: 75 Year
  Sex: Female
  Weight: 52.3 kg

DRUGS (5)
  1. ECOTRIN REGULAR STRENGTH TABLETS [Suspect]
     Indication: ARTHRALGIA
     Route: 048
     Dates: start: 19840101
  2. SYNTHROID [Concomitant]
     Indication: HYPOTHYROIDISM
     Route: 048
  3. PREMARIN [Concomitant]
     Indication: MENOPAUSAL SYMPTOMS
     Route: 048
  4. AVANDIA [Concomitant]
     Indication: DIABETES MELLITUS
     Route: 048
  5. KENALOG [Concomitant]
     Indication: SYSTEMIC LUPUS ERYTHEMATOSUS
     Route: 030

REACTIONS (16)
  - ABDOMINAL PAIN UPPER [None]
  - CHOLELITHIASIS [None]
  - COLORECTAL CANCER [None]
  - CONSTIPATION [None]
  - DIARRHOEA [None]
  - DIVERTICULITIS [None]
  - FALL [None]
  - GASTROINTESTINAL PAIN [None]
  - HAEMORRHAGE [None]
  - INTESTINAL OBSTRUCTION [None]
  - PIGMENTED NAEVUS [None]
  - RASH [None]
  - SKIN CANCER [None]
  - SPINAL FRACTURE [None]
  - SYNCOPE [None]
  - ULCER HAEMORRHAGE [None]
